FAERS Safety Report 6306287-2 (Version None)
Quarter: 2009Q3

REPORT INFORMATION
  Report Type: 
  Country: None (occurrence: None)
  Receive Date: 20090812
  Receipt Date: 20090807
  Transmission Date: 20100115
  Serious: Yes (Death, Other)
  Sender: FDA-Public Use
  Company Number: PHHY2009HR33541

PATIENT
  Sex: Male

DRUGS (5)
  1. LESCOL XL [Suspect]
     Indication: HYPERLIPIDAEMIA
     Dosage: 80MG PER DAY
     Route: 048
     Dates: start: 20051025, end: 20051214
  2. LACIDIPINE [Concomitant]
     Dosage: 4 MG, UNK
     Dates: start: 20030321
  3. BISOPROLOL [Concomitant]
     Dosage: 5 MG, UNK
     Dates: start: 20030724
  4. LOSARTAN [Concomitant]
     Dosage: UNK
     Dates: start: 20040419
  5. LOSARTAN POTASSIUM AND HYDROCHLOROTHIAZIDE [Concomitant]
     Dosage: UNK
     Dates: start: 20050809

REACTIONS (6)
  - ALANINE AMINOTRANSFERASE INCREASED [None]
  - ASPARTATE AMINOTRANSFERASE INCREASED [None]
  - BLOOD ALKALINE PHOSPHATASE INCREASED [None]
  - BLOOD BILIRUBIN INCREASED [None]
  - DEATH [None]
  - GAMMA-GLUTAMYLTRANSFERASE INCREASED [None]
